FAERS Safety Report 16606509 (Version 1)
Quarter: 2019Q3

REPORT INFORMATION
  Report Type: Spontaneous
  Country: CA (occurrence: CA)
  Receive Date: 20190722
  Receipt Date: 20190722
  Transmission Date: 20191004
  Serious: Yes (Other)
  Sender: FDA-Public Use
  Company Number: CA-AUROBINDO-AUR-APL-2019-041315

PATIENT

DRUGS (3)
  1. GABAPENTIN. [Suspect]
     Active Substance: GABAPENTIN
     Indication: PAIN
     Dosage: UNK
     Route: 065
  2. TRAMADOL HYDROCHLORIDE. [Suspect]
     Active Substance: TRAMADOL HYDROCHLORIDE
     Indication: PAIN
     Dosage: UNK
     Route: 065
  3. AMITRIPTYLINE [Suspect]
     Active Substance: AMITRIPTYLINE
     Indication: PAIN
     Dosage: UNK
     Route: 065

REACTIONS (9)
  - Product use in unapproved indication [Unknown]
  - Back pain [Unknown]
  - Peripheral swelling [Unknown]
  - Eye disorder [Unknown]
  - Drug intolerance [Unknown]
  - Localised infection [Unknown]
  - Rheumatoid arthritis [Unknown]
  - Therapeutic response changed [Unknown]
  - Therapeutic product effect incomplete [Unknown]
